FAERS Safety Report 4654801-5 (Version None)
Quarter: 2005Q2

REPORT INFORMATION
  Report Type: 
  Country: None (occurrence: None)
  Receive Date: 20050506
  Receipt Date: 20050428
  Transmission Date: 20051028
  Serious: Yes (Disabling)
  Sender: FDA-Public Use
  Company Number: US-ROCHE-403390

PATIENT
  Age: 5 Month
  Sex: Male

DRUGS (2)
  1. ACCUTANE [Suspect]
  2. ORAL CONTRACEPTIVE PILL [Concomitant]

REACTIONS (6)
  - ASTHMA [None]
  - DRUG EXPOSURE DURING PREGNANCY [None]
  - FAILURE TO THRIVE [None]
  - HEARING IMPAIRED [None]
  - LIVE BIRTH [None]
  - NERVOUS SYSTEM DISORDER [None]
